FAERS Safety Report 21298762 (Version 2)
Quarter: 2023Q1

REPORT INFORMATION
  Report Type: Report from Study
  Country: US (occurrence: US)
  Receive Date: 20220906
  Receipt Date: 20230206
  Transmission Date: 20230418
  Serious: Yes (Hospitalization, Other)
  Sender: FDA-Public Use
  Company Number: US-PFIZER INC-202201110678

PATIENT
  Age: 87 Year
  Sex: Male

DRUGS (1)
  1. VYNDAMAX [Suspect]
     Active Substance: TAFAMIDIS
     Dosage: 61 MG

REACTIONS (8)
  - Cardiac failure [Unknown]
  - Ascites [Unknown]
  - Pulmonary oedema [Unknown]
  - Abdominal distension [Unknown]
  - Peripheral swelling [Unknown]
  - Dyspnoea [Unknown]
  - Balance disorder [Unknown]
  - Gout [Unknown]
